FAERS Safety Report 4559700-5 (Version None)
Quarter: 2005Q1

REPORT INFORMATION
  Report Type: 
  Country: None (occurrence: None)
  Receive Date: 20050114
  Receipt Date: 20040610
  Transmission Date: 20050727
  Serious: No
  Sender: FDA-Public Use
  Company Number: FEI2004-0631

PATIENT
  Age: 27 Year
  Sex: Female

DRUGS (1)
  1. INTRAUTERINE COPPER CONTRACEPTIVE [Suspect]
     Indication: CONTRACEPTION
     Dosage: INTRA-UTERINE
     Route: 015
     Dates: start: 19990101, end: 20040601

REACTIONS (1)
  - IUCD COMPLICATION [None]
